FAERS Safety Report 8780276 (Version 1)
Quarter: 2012Q4

REPORT INFORMATION
  Report Type: Spontaneous
  Country: US (occurrence: None)
  Receive Date: 20120905
  Receipt Date: 20120905
  Transmission Date: 20130627
  Serious: Yes (Other)
  Sender: FDA-Public Use
  Company Number: None

PATIENT
  Age: 84 Year
  Sex: Male
  Weight: 70.76 kg

DRUGS (1)
  1. ZYRTEC LIQUID GEL LOT 130000787 EXP 10/13 [Suspect]
     Dosage: 1 pill

REACTIONS (3)
  - Confusional state [None]
  - Memory impairment [None]
  - Urinary incontinence [None]
